FAERS Safety Report 4340609-7 (Version None)
Quarter: 2004Q2

REPORT INFORMATION
  Report Type: 
  Country: None (occurrence: None)
  Receive Date: 20040414
  Receipt Date: 20040407
  Transmission Date: 20050107
  Serious: Yes (Hospitalization)
  Sender: FDA-Public Use
  Company Number: LTI2004A00074

PATIENT
  Age: 9 Year
  Sex: Female

DRUGS (2)
  1. ENANTONE LP (3M) (LEUPROLIDE ACETATE) (INJECTION) [Suspect]
     Indication: PRECOCIOUS PUBERTY
     Dates: start: 20021122
  2. GENOTONORM (SOMATROPIN (INJECTION) [Suspect]
     Indication: GROWTH RETARDATION
     Route: 058
     Dates: start: 20021122

REACTIONS (4)
  - BONE DISORDER [None]
  - BONE GRAFT [None]
  - BONE SWELLING [None]
  - DYSPLASIA [None]
